FAERS Safety Report 8002750-7 (Version None)
Quarter: 2011Q4

REPORT INFORMATION
  Report Type: 
  Country: None (occurrence: None)
  Receive Date: 20111222
  Receipt Date: 20111208
  Transmission Date: 20120403
  Serious: Yes (Other)
  Sender: FDA-Public Use
  Company Number: AU-ROCHE-1018695

PATIENT
  Age: 41 Year
  Sex: Female
  Weight: 55.8 kg

DRUGS (5)
  1. VEMURAFENIB [Suspect]
     Indication: METASTATIC MALIGNANT MELANOMA
     Route: 048
     Dates: start: 20110715, end: 20111202
  2. VEMURAFENIB [Suspect]
     Dates: start: 20111209
  3. ACETAMINOPHEN [Concomitant]
     Dates: start: 20110727
  4. VOLTAREN [Concomitant]
     Dates: start: 20111104
  5. TEGRETOL [Concomitant]
     Dates: start: 19870101

REACTIONS (1)
  - HYPOKALAEMIA [None]
